FAERS Safety Report 5459504-5 (Version None)
Quarter: 2007Q3

REPORT INFORMATION
  Report Type: 
  Country: None (occurrence: None)
  Receive Date: 20070919
  Receipt Date: 20070912
  Transmission Date: 20080115
  Serious: Yes (Disabling, Other)
  Sender: FDA-Public Use
  Company Number: B0484630A

PATIENT
  Age: 71 Year
  Sex: Male
  Weight: 88 kg

DRUGS (6)
  1. DIGOXIN [Suspect]
     Indication: DRUG USE FOR UNKNOWN INDICATION
     Route: 048
     Dates: start: 20070613
  2. ERYTHROMYCIN [Suspect]
     Indication: SKIN INFECTION
     Route: 048
     Dates: start: 20070613, end: 20070627
  3. ASPIRIN [Concomitant]
     Dosage: 75MG PER DAY
  4. BISOPROLOL [Concomitant]
     Indication: ATRIAL FIBRILLATION
     Route: 048
     Dates: start: 20070226
  5. ENALAPRIL MALEATE [Concomitant]
     Indication: HYPERTENSION
     Route: 048
     Dates: start: 20060704
  6. FRUSEMIDE [Concomitant]
     Dosage: 2MG TWICE PER DAY
     Route: 048

REACTIONS (1)
  - ATRIAL FIBRILLATION [None]
